FAERS Safety Report 9288665 (Version 1)
Quarter: 2013Q2

REPORT INFORMATION
  Report Type: Spontaneous
  Country: BR (occurrence: BR)
  Receive Date: 20130514
  Receipt Date: 20130514
  Transmission Date: 20140414
  Serious: Yes (Hospitalization)
  Sender: FDA-Public Use
  Company Number: BR-ASTRAZENECA-2013SE32212

PATIENT
  Age: 947 Month
  Sex: Female
  Weight: 60 kg

DRUGS (2)
  1. CRESTOR [Suspect]
     Indication: BLOOD CHOLESTEROL INCREASED
     Route: 048
     Dates: start: 201212
  2. EUTHYROX [Concomitant]
     Dosage: DAILY

REACTIONS (2)
  - Blood pressure increased [Recovered/Resolved]
  - Stress [Recovered/Resolved]
